FAERS Safety Report 18006941 (Version 6)
Quarter: 2021Q4

REPORT INFORMATION
  Report Type: Spontaneous
  Country: US (occurrence: US)
  Receive Date: 20200710
  Receipt Date: 20211217
  Transmission Date: 20220303
  Serious: Yes (Hospitalization)
  Sender: FDA-Public Use
  Company Number: US-SA-2020SA172558

PATIENT
  Age: 50 Year
  Sex: Male

DRUGS (2)
  1. DUPIXENT [Suspect]
     Active Substance: DUPILUMAB
     Indication: Dermatitis atopic
     Dosage: 600 MG, 1X
     Route: 058
     Dates: start: 202004, end: 202004
  2. DUPIXENT [Suspect]
     Active Substance: DUPILUMAB
     Dosage: 300 MG, QOW (300MG /2ML, INJ 600MG 2Y SQ ON D 1,THEN 300MG 1Y Q 2 WS S15)
     Route: 058
     Dates: start: 202004

REACTIONS (9)
  - Cardiac disorder [Unknown]
  - Chest pain [Unknown]
  - Dizziness [Unknown]
  - Gastrointestinal infection [Unknown]
  - Hypotension [Unknown]
  - Dyspnoea [Unknown]
  - Eczema [Unknown]
  - Pruritus [Unknown]
  - Product dose omission issue [Unknown]

NARRATIVE: CASE EVENT DATE: 20200101
